FAERS Safety Report 12736784 (Version 1)
Quarter: 2016Q3

REPORT INFORMATION
  Report Type: Spontaneous
  Country: US (occurrence: US)
  Receive Date: 20160913
  Receipt Date: 20160913
  Transmission Date: 20161109
  Serious: Yes (Other)
  Sender: FDA-Public Use
  Company Number: US-JNJCP-30000323501

PATIENT
  Sex: Female

DRUGS (1)
  1. NEUTROGENA OIL FREE ACNE WASH PINK GRAPEFRUIT FACIAL CLEANSER [Suspect]
     Active Substance: SALICYLIC ACID
     Indication: ACNE
     Dosage: ONE PUMP AMOUNT
     Route: 061
     Dates: start: 20160201, end: 20160201

REACTIONS (8)
  - Application site papules [Recovered/Resolved]
  - Application site reaction [Not Recovered/Not Resolved]
  - Exposure during pregnancy [Unknown]
  - Application site exfoliation [Recovered/Resolved]
  - Application site pruritus [Recovered/Resolved]
  - Application site acne [Recovered/Resolved]
  - Abortion spontaneous [Recovered/Resolved]
  - Application site rash [Recovered/Resolved]

NARRATIVE: CASE EVENT DATE: 20160201
